FAERS Safety Report 8707256 (Version 3)
Quarter: 2012Q4

REPORT INFORMATION
  Report Type: 
  Country: US (occurrence: US)
  Receive Date: 20120803
  Receipt Date: 20120828
  Transmission Date: 20130627
  Serious: No
  Sender: FDA-Public Use
  Company Number: US-009507513-1207USA002785

PATIENT

DRUGS (4)
  1. VICTRELIS [Suspect]
     Dosage: 4 DF, tid
     Route: 048
     Dates: start: 20120606, end: 20120704
  2. REBETOL [Suspect]
     Dosage: 1200 mg, qd
     Route: 048
     Dates: start: 20120609, end: 20120627
  3. PEGASYS [Suspect]
     Dosage: 180 mcg/mL, UNK
     Dates: start: 20120609, end: 20120627
  4. FUROSEMIDE [Suspect]
     Dosage: 20 mg, UNK
     Dates: start: 201204

REACTIONS (4)
  - Dysstasia [Unknown]
  - Epistaxis [Unknown]
  - Anaemia [Unknown]
  - Influenza like illness [Unknown]
